FAERS Safety Report 5232377-1 (Version None)
Quarter: 2007Q1

REPORT INFORMATION
  Report Type: 
  Country: None (occurrence: None)
  Receive Date: 20070205
  Receipt Date: 20070131
  Transmission Date: 20070707
  Serious: Yes (Death, Hospitalization)
  Sender: FDA-Public Use
  Company Number: 2007SP001183

PATIENT
  Age: 63 Year
  Sex: Female

DRUGS (6)
  1. TEMODAL [Suspect]
     Indication: GLIOBLASTOMA MULTIFORME
     Dosage: 150 MG/M2; QD; PO
     Route: 048
  2. IRINOTECAN HCL [Suspect]
     Indication: GLIOBLASTOMA MULTIFORME
     Dosage: 150 MG/M2; IV
     Route: 042
  3. DOLACENTRON [Concomitant]
  4. LOW MOLECULAR WEIGHT [Concomitant]
  5. HEPARIN [Concomitant]
  6. STEROIDS [Concomitant]

REACTIONS (5)
  - BONE MARROW TOXICITY [None]
  - FEBRILE NEUTROPENIA [None]
  - PNEUMONIA [None]
  - SEPSIS [None]
  - THROMBOCYTOPENIA [None]
